FAERS Safety Report 5287658-2 (Version None)
Quarter: 2007Q1

REPORT INFORMATION
  Report Type: 
  Country: None (occurrence: None)
  Receive Date: 20070116
  Receipt Date: 20061129
  Transmission Date: 20070707
  Serious: No
  Sender: FDA-Public Use
  Company Number: 2005SP000124

PATIENT
  Age: 43 Year
  Sex: Female
  Weight: 54.4316 kg

DRUGS (3)
  1. LUNESTA [Suspect]
     Indication: INSOMNIA
     Dosage: SEE IMAGE
     Route: 048
     Dates: start: 20050331, end: 20050420
  2. LUNESTA [Suspect]
     Indication: INSOMNIA
     Dosage: SEE IMAGE
     Route: 048
     Dates: start: 20050502
  3. LEXAPRO [Concomitant]

REACTIONS (4)
  - DECREASED APPETITE [None]
  - DYSGEUSIA [None]
  - MIDDLE INSOMNIA [None]
  - NAUSEA [None]
